FAERS Safety Report 21793005 (Version 1)
Quarter: 2022Q4

REPORT INFORMATION
  Report Type: Spontaneous
  Country: CN (occurrence: CN)
  Receive Date: 20221229
  Receipt Date: 20221229
  Transmission Date: 20230113
  Serious: Yes (Hospitalization)
  Sender: FDA-Public Use
  Company Number: CN-STRIDES ARCOLAB LIMITED-2022SP017561

PATIENT
  Age: 16 Year
  Sex: Male

DRUGS (2)
  1. METHOTREXATE [Suspect]
     Active Substance: METHOTREXATE
     Indication: Osteosarcoma
     Dosage: 10 GRAM PER SQUARE METRE, CYCLICAL (THREE CYCLES PRE-OPERATIVELY AND 4 CYCLES POST-OPERATIVELY)
     Route: 065
     Dates: start: 2011
  2. EPIRUBICIN [Suspect]
     Active Substance: EPIRUBICIN
     Indication: Osteosarcoma
     Dosage: 80 MILLIGRAM/SQ. METER, CYCLICAL  (THREE CYCLES PRE-OPERATIVELY AND 4 CYCLES POST-OPERATIVELY)
     Route: 065
     Dates: start: 2011

REACTIONS (2)
  - Bone graft [Recovered/Resolved]
  - Transplant failure [Recovered/Resolved]
